FAERS Safety Report 7455926-1 (Version None)
Quarter: 2011Q2

REPORT INFORMATION
  Report Type: 
  Country: None (occurrence: None)
  Receive Date: 20110503
  Receipt Date: 20110428
  Transmission Date: 20111010
  Serious: Yes (Other)
  Sender: FDA-Public Use
  Company Number: SE-B.I. PHARMACEUTICALS,INC./RIDGEFIELD-2011-SW-00144SW

PATIENT
  Sex: Female

DRUGS (4)
  1. SIMVASTATIN [Concomitant]
     Dosage: 20 MG
  2. PRADAXA [Suspect]
     Indication: THROMBOSIS PROPHYLAXIS
  3. CALCICHEW D3 [Concomitant]
     Dosage: 1X2
  4. ENALAPRIL [Concomitant]
     Dosage: 5 MG

REACTIONS (1)
  - DEEP VEIN THROMBOSIS [None]
